FAERS Safety Report 9793217 (Version 2)
Quarter: 2014Q1

REPORT INFORMATION
  Report Type: Spontaneous
  Country: GB (occurrence: GB)
  Receive Date: 20140102
  Receipt Date: 20140123
  Transmission Date: 20141002
  Serious: Yes (Death, Hospitalization)
  Sender: FDA-Public Use
  Company Number: GB-TEVA-452676ISR

PATIENT
  Age: 77 Year
  Sex: Male

DRUGS (1)
  1. WARFARIN [Suspect]
     Dosage: LONG TERM USE
     Route: 048
     Dates: start: 2009, end: 20130519

REACTIONS (6)
  - Subdural haematoma [Fatal]
  - Confusional state [Unknown]
  - Mobility decreased [Unknown]
  - Fall [Not Recovered/Not Resolved]
  - Head injury [Not Recovered/Not Resolved]
  - Intracranial pressure increased [Not Recovered/Not Resolved]
